FAERS Safety Report 6785812-1 (Version None)
Quarter: 2010Q2

REPORT INFORMATION
  Report Type: 
  Country: None (occurrence: None)
  Receive Date: 20100621
  Receipt Date: 20100621
  Transmission Date: 20101027
  Serious: Yes (Hospitalization)
  Sender: FDA-Public Use
  Company Number: None

PATIENT
  Age: 61 Year
  Sex: Female
  Weight: 64.8644 kg

DRUGS (1)
  1. RECLAST [Suspect]
     Indication: OSTEOPENIA
     Dosage: 1/YEAR I.V.
     Route: 042
     Dates: start: 20100603, end: 20100603

REACTIONS (7)
  - CHEST DISCOMFORT [None]
  - DIZZINESS [None]
  - DYSPNOEA [None]
  - IMPAIRED WORK ABILITY [None]
  - PAIN [None]
  - PAIN IN EXTREMITY [None]
  - WEIGHT BEARING DIFFICULTY [None]
